FAERS Safety Report 16585251 (Version 1)
Quarter: 2019Q3

REPORT INFORMATION
  Report Type: Spontaneous
  Country: US (occurrence: US)
  Receive Date: 20190717
  Receipt Date: 20190717
  Transmission Date: 20191004
  Serious: Yes (Other)
  Sender: FDA-Public Use
  Company Number: US-PFIZER INC-2019295985

PATIENT
  Sex: Female

DRUGS (2)
  1. XANAX [Suspect]
     Active Substance: ALPRAZOLAM
     Dosage: 0.5 MG, 1X/DAY (ONE AT NIGHT)
  2. KLONOPIN [Suspect]
     Active Substance: CLONAZEPAM
     Dosage: UNK

REACTIONS (8)
  - Panic attack [Unknown]
  - Depression [Unknown]
  - Anger [Unknown]
  - Mental impairment [Unknown]
  - Stress [Unknown]
  - Confusional state [Unknown]
  - Insomnia [Unknown]
  - Logorrhoea [Unknown]
